FAERS Safety Report 4691678-6 (Version None)
Quarter: 2005Q2

REPORT INFORMATION
  Report Type: 
  Country: None (occurrence: None)
  Receive Date: 20050616
  Receipt Date: 20050603
  Transmission Date: 20051028
  Serious: Yes (Other)
  Sender: FDA-Public Use
  Company Number: US-JNJFOC-20050602604

PATIENT
  Sex: Male

DRUGS (2)
  1. EXTRA STRENGTH TYLENOL [Suspect]
     Route: 049
  2. EXTRA STRENGTH TYLENOL [Suspect]
     Indication: HEADACHE
     Route: 049

REACTIONS (5)
  - HYPERSENSITIVITY [None]
  - LACRIMATION INCREASED [None]
  - RESPIRATORY TRACT CONGESTION [None]
  - SWELLING [None]
  - URTICARIA [None]
